FAERS Safety Report 19884454 (Version 3)
Quarter: 2021Q4

REPORT INFORMATION
  Report Type: Report from Study
  Country: US (occurrence: US)
  Receive Date: 20210927
  Receipt Date: 20211201
  Transmission Date: 20220304
  Serious: No
  Sender: FDA-Public Use
  Company Number: NVSC2021US218712

PATIENT
  Sex: Female

DRUGS (2)
  1. ENTRESTO [Suspect]
     Active Substance: SACUBITRIL\VALSARTAN
     Indication: Product used for unknown indication
     Dosage: 100 MG, BID (49/51MG)
     Route: 048
     Dates: start: 202109
  2. FLONASE [Suspect]
     Active Substance: FLUTICASONE PROPIONATE
     Indication: Product used for unknown indication
     Route: 065

REACTIONS (8)
  - Throat clearing [Unknown]
  - Spinal column injury [Unknown]
  - Epistaxis [Unknown]
  - Fall [Unknown]
  - Dizziness postural [Unknown]
  - Vertigo [Unknown]
  - Cough [Unknown]
  - Hypersensitivity [Unknown]
